FAERS Safety Report 8611542 (Version 3)
Quarter: 2012Q4

REPORT INFORMATION
  Report Type: 
  Country: BR (occurrence: BR)
  Receive Date: 20120613
  Receipt Date: 20120829
  Transmission Date: 20130627
  Serious: Yes (Hospitalization, Other)
  Sender: FDA-Public Use
  Company Number: BR-SANOFI-AVENTIS-2012SA040995

PATIENT
  Age: 11 Year
  Sex: Male

DRUGS (4)
  1. LANTUS [Suspect]
     Indication: TYPE I DIABETES MELLITUS
     Dosage: 20 iu in the morning and 10 iu in night
     Route: 058
     Dates: start: 2009
  2. LANTUS [Suspect]
     Indication: TYPE I DIABETES MELLITUS
     Route: 058
     Dates: start: 2012, end: 201205
  3. LANTUS [Suspect]
     Indication: TYPE I DIABETES MELLITUS
     Route: 058
  4. DEVICE [Suspect]
     Indication: DEVICE THERAPY

REACTIONS (12)
  - Dehydration [Unknown]
  - Thyroid disorder [Unknown]
  - Vomiting [Unknown]
  - Hyperglycaemia [Not Recovered/Not Resolved]
  - Drug administration error [Unknown]
  - Pollakiuria [Not Recovered/Not Resolved]
  - Thirst [Not Recovered/Not Resolved]
  - Lid sulcus deepened [Not Recovered/Not Resolved]
  - Parosmia [Not Recovered/Not Resolved]
  - Nervousness [Not Recovered/Not Resolved]
  - Agitation [Not Recovered/Not Resolved]
  - Weight decreased [Not Recovered/Not Resolved]
